FAERS Safety Report 5892286-1 (Version None)
Quarter: 2008Q3

REPORT INFORMATION
  Report Type: 
  Country: None (occurrence: None)
  Receive Date: 20080919
  Receipt Date: 20080908
  Transmission Date: 20090109
  Serious: Yes (Other)
  Sender: FDA-Public Use
  Company Number: US024584

PATIENT
  Age: 37 Year
  Sex: Female

DRUGS (2)
  1. PROVIGIL [Suspect]
     Indication: FATIGUE
     Dosage: 200 MG QD ORAL
     Route: 048
     Dates: start: 20080801, end: 20080901
  2. PROVIGIL [Suspect]
     Indication: FATIGUE
     Dosage: 200 MG BID ORAL
     Route: 048
     Dates: start: 20080901, end: 20080901

REACTIONS (5)
  - ASTHENIA [None]
  - CATATONIA [None]
  - DRUG INEFFECTIVE [None]
  - REFUSAL OF TREATMENT BY PATIENT [None]
  - SPEECH DISORDER [None]
